FAERS Safety Report 4981605-6 (Version None)
Quarter: 2006Q2

REPORT INFORMATION
  Report Type: 
  Country: None (occurrence: None)
  Receive Date: 20060420
  Receipt Date: 20060420
  Transmission Date: 20061013
  Serious: Yes (Hospitalization)
  Sender: FDA-Public Use
  Company Number: None

PATIENT
  Age: 85 Year
  Sex: Female
  Weight: 57 kg

DRUGS (16)
  1. CELEBREX [Suspect]
     Indication: PAIN
     Dosage: 200 MG PO QD CHRONIC
     Route: 048
  2. PHENERGAN HCL [Suspect]
     Indication: NAUSEA
     Dosage: 12.5 MG IV X1
     Route: 042
     Dates: start: 20060308
  3. ADVAIR DISKUS 100/50 [Concomitant]
  4. LASIX [Concomitant]
  5. CARBIDOPA [Concomitant]
  6. ASPIRIN [Concomitant]
  7. POTASSIUM [Concomitant]
  8. MIROPEX [Concomitant]
  9. COMTAN [Concomitant]
  10. SINEMET [Concomitant]
  11. TYLENOL (CAPLET) [Concomitant]
  12. BISACODYL [Concomitant]
  13. MON [Concomitant]
  14. ZOFRAN [Concomitant]
  15. PAXIL [Concomitant]
  16. IRON [Concomitant]

REACTIONS (9)
  - CATHETER RELATED COMPLICATION [None]
  - CONVULSION [None]
  - EROSIVE OESOPHAGITIS [None]
  - GASTROINTESTINAL HAEMORRHAGE [None]
  - INJURY [None]
  - LETHARGY [None]
  - NAUSEA [None]
  - PEPTIC ULCER [None]
  - VOMITING [None]
